FAERS Safety Report 17102038 (Version 1)
Quarter: 2019Q4

REPORT INFORMATION
  Report Type: Report from Study
  Country: US (occurrence: US)
  Receive Date: 20191202
  Receipt Date: 20191202
  Transmission Date: 20200122
  Serious: Yes (Hospitalization)
  Sender: FDA-Public Use
  Company Number: US-BAUSCH-BL-2019-063234

PATIENT
  Sex: Male

DRUGS (1)
  1. SILIQ [Suspect]
     Active Substance: BRODALUMAB
     Indication: PRODUCT USED FOR UNKNOWN INDICATION
     Route: 065

REACTIONS (4)
  - Abdominal pain [Recovering/Resolving]
  - Dyspnoea [Recovering/Resolving]
  - Nausea [Recovering/Resolving]
  - Heart rate irregular [Recovering/Resolving]
